FAERS Safety Report 16215239 (Version 1)
Quarter: 2019Q2

REPORT INFORMATION
  Report Type: Spontaneous
  Country: US (occurrence: US)
  Receive Date: 20190418
  Receipt Date: 20190418
  Transmission Date: 20190711
  Serious: Yes (Hospitalization)
  Sender: FDA-Public Use
  Company Number: None

PATIENT
  Age: 21 Year
  Sex: Male
  Weight: 60.2 kg

DRUGS (3)
  1. AXICABTAGENE CILOLEUCEL [Suspect]
     Active Substance: AXICABTAGENE CILOLEUCEL
     Indication: DIFFUSE LARGE B-CELL LYMPHOMA
     Dosage: OTHER FREQUENCY:ONCE;OTHER ROUTE:INFUSED VIA A CENTRAL LINE?
     Dates: start: 20190125, end: 20190125
  2. FLUDARABINE PHOSPHATE. [Concomitant]
     Active Substance: FLUDARABINE PHOSPHATE
     Dates: start: 20190121, end: 20190123
  3. CYCLOPHOSPHAMIDE. [Concomitant]
     Active Substance: CYCLOPHOSPHAMIDE
     Dates: start: 20190121, end: 20190123

REACTIONS (4)
  - Insomnia [None]
  - Lung infection [None]
  - Lung neoplasm malignant [None]
  - Cytokine release syndrome [None]

NARRATIVE: CASE EVENT DATE: 20190219
